FAERS Safety Report 15131427 (Version 1)
Quarter: 2018Q3

REPORT INFORMATION
  Report Type: Other
  Country: US (occurrence: US)
  Receive Date: 20180711
  Receipt Date: 20180711
  Transmission Date: 20181010
  Serious: Yes (Other)
  Sender: FDA-Public Use
  Company Number: US-MEDICURE INC.-2051770

PATIENT
  Age: 58 Year
  Sex: Male

DRUGS (4)
  1. DOPAMINE [Concomitant]
     Active Substance: DOPAMINE\DOPAMINE HYDROCHLORIDE
  2. AGGRASTAT [Suspect]
     Active Substance: TIROFIBAN HYDROCHLORIDE
     Indication: ANTIPLATELET THERAPY
     Route: 040
  3. ASPIRIN. [Concomitant]
     Active Substance: ASPIRIN
  4. TICAGRELOR. [Concomitant]
     Active Substance: TICAGRELOR

REACTIONS (1)
  - Hypotension [Recovered/Resolved]
